FAERS Safety Report 9008727 (Version 1)
Quarter: 2013Q1

REPORT INFORMATION
  Report Type: Spontaneous
  Country: DE (occurrence: DE)
  Receive Date: 20130111
  Receipt Date: 20130111
  Transmission Date: 20140127
  Serious: Yes (Other)
  Sender: FDA-Public Use
  Company Number: GXKR2013DE000464

PATIENT
  Sex: 0

DRUGS (1)
  1. LOPEDIUM [Suspect]
     Dosage: UNK UKN, UNK
     Route: 065

REACTIONS (1)
  - Drug abuse [Unknown]
